FAERS Safety Report 17823389 (Version 4)
Quarter: 2020Q3

REPORT INFORMATION
  Report Type: Report from Study
  Country: CA (occurrence: CA)
  Receive Date: 20200526
  Receipt Date: 20200918
  Transmission Date: 20201102
  Serious: Yes (Death, Hospitalization, Other)
  Sender: FDA-Public Use
  Company Number: PHHY2013CA131737

PATIENT
  Age: 81 Year
  Sex: Female

DRUGS (6)
  1. SANDOSTATIN LAR DEPOT [Suspect]
     Active Substance: OCTREOTIDE ACETATE
     Dosage: 30 MG, Q4W
     Route: 030
  2. SANDOSTATIN LAR DEPOT [Suspect]
     Active Substance: OCTREOTIDE ACETATE
     Dosage: 30 MG, Q4W
     Route: 030
  3. SANDOSTATIN LAR DEPOT [Suspect]
     Active Substance: OCTREOTIDE ACETATE
     Dosage: 60 MG
     Route: 030
  4. MORPHINE [Suspect]
     Active Substance: MORPHINE
     Indication: PRODUCT USED FOR UNKNOWN INDICATION
     Dosage: UNK
     Route: 065
  5. ENTOCORT [Concomitant]
     Active Substance: BUDESONIDE
     Indication: PRODUCT USED FOR UNKNOWN INDICATION
     Dosage: 9 MG, QD
     Route: 065
  6. SANDOSTATIN LAR DEPOT [Suspect]
     Active Substance: OCTREOTIDE ACETATE
     Indication: NEUROENDOCRINE TUMOUR
     Dosage: 30 MG, QMO (EVERY 4 WEEKS)
     Route: 030
     Dates: start: 20131016

REACTIONS (24)
  - Pain [Unknown]
  - Death [Fatal]
  - Back pain [Unknown]
  - Nausea [Unknown]
  - Heart rate decreased [Unknown]
  - Body temperature decreased [Unknown]
  - Heart rate increased [Unknown]
  - Blood pressure increased [Not Recovered/Not Resolved]
  - Influenza like illness [Not Recovered/Not Resolved]
  - Nasopharyngitis [Unknown]
  - Neck pain [Recovering/Resolving]
  - Skin turgor decreased [Unknown]
  - Dizziness [Unknown]
  - Spinal pain [Recovering/Resolving]
  - Colitis [Unknown]
  - Rash [Not Recovered/Not Resolved]
  - Abdominal pain [Recovering/Resolving]
  - Food allergy [Unknown]
  - Weight decreased [Unknown]
  - Illness [Unknown]
  - Abdominal pain upper [Unknown]
  - Decreased appetite [Unknown]
  - Urticaria [Recovered/Resolved]
  - Injection site swelling [Unknown]

NARRATIVE: CASE EVENT DATE: 20150205
